FAERS Safety Report 16261322 (Version 5)
Quarter: 2021Q3

REPORT INFORMATION
  Report Type: Report from Study
  Country: ES (occurrence: ES)
  Receive Date: 20190501
  Receipt Date: 20210922
  Transmission Date: 20211014
  Serious: Yes (Other)
  Sender: FDA-Public Use
  Company Number: ES-PFIZER INC-2019180662

PATIENT
  Age: 87 Year
  Sex: Female
  Weight: 58.5 kg

DRUGS (10)
  1. OMEPRAZOLE. [Concomitant]
     Active Substance: OMEPRAZOLE
     Dosage: 20 MG, 1X/DAY (20 MILLIGRAM, DAILY)
     Route: 048
  2. ATROVENT [Concomitant]
     Active Substance: IPRATROPIUM BROMIDE
     Indication: RESPIRATORY FAILURE
     Dosage: 6 DF, 1X/DAY (TOTAL DAILY DOSE 6 , RESPIRATORY  )
     Route: 055
  3. DESVENLAFAXINE. [Concomitant]
     Active Substance: DESVENLAFAXINE
     Indication: RADICULOPATHY
     Dosage: 50 MG, 1X/DAY (50 MILLIGRAM, DAILY   )
     Route: 048
  4. BUPRENORPHINE. [Concomitant]
     Active Substance: BUPRENORPHINE
     Indication: RADICULOPATHY
     Dosage: 35 UG/72H CUTANEOUS PATCH
  5. BEZLOTOXUMAB [Suspect]
     Active Substance: BEZLOTOXUMAB
     Indication: CLOSTRIDIUM DIFFICILE INFECTION
     Dosage: 10 MG/KG, SINGLE (10 MG/KG, SINGLE DOSE   )
     Dates: start: 20190129
  6. VANCOMYCIN HCL [Suspect]
     Active Substance: VANCOMYCIN HYDROCHLORIDE
     Indication: CLOSTRIDIUM DIFFICILE INFECTION
     Dosage: UNK
  7. ENALAPRIL [Concomitant]
     Active Substance: ENALAPRIL
     Indication: HYPERTENSION
     Dosage: 10 MG, 1X/DAY (10 MILLIGRAM, DAILY   )
     Route: 048
  8. CAOSINA [Concomitant]
     Active Substance: CALCIUM CARBONATE
     Indication: CHRONIC KIDNEY DISEASE
     Dosage: TOTAL DAILY DOSE 2500
     Route: 048
  9. FUROSEMIDE. [Concomitant]
     Active Substance: FUROSEMIDE
     Indication: HYPERTENSION
     Dosage: 20 MG, 1X/DAY (20 MILLIGRAM, DAILY   )
     Route: 048
  10. TARDYFERON [Concomitant]
     Active Substance: FERROUS SULFATE
     Indication: ANAEMIA
     Dosage: TOTAL DAILY DOSE 80
     Route: 048

REACTIONS (2)
  - Drug ineffective [Unknown]
  - Clostridium difficile infection [Recovered/Resolved]

NARRATIVE: CASE EVENT DATE: 20190314
